FAERS Safety Report 4679601-1 (Version None)
Quarter: 2005Q2

REPORT INFORMATION
  Report Type: 
  Country: None (occurrence: None)
  Receive Date: 20050602
  Receipt Date: 20041214
  Transmission Date: 20051028
  Serious: Yes (Hospitalization)
  Sender: FDA-Public Use
  Company Number: GB-BOEHRINGER INGELHEIM PHARMACEUTICALS, INC.-2004-UK-01350UK

PATIENT
  Age: 70 Year
  Sex: Female

DRUGS (5)
  1. CATAPRES (0015/5009R) [Suspect]
     Indication: BLOOD PRESSURE INCREASED
     Route: 048
     Dates: start: 20030331, end: 20030407
  2. DILTIAZEM [Suspect]
     Indication: PAIN
     Dosage: 90 MG TWICE DAILY
     Route: 048
  3. ISOSORBIDE MONONITRATE [Concomitant]
     Indication: ANGINA PECTORIS
     Dosage: 60 MG ONCE DAILY
     Route: 048
  4. CELEBREX [Concomitant]
     Indication: ARTHRITIS
     Dosage: 100 MG ONCE DAILY
     Route: 048
  5. BENDROFLUAZIDE [Concomitant]
     Indication: BLOOD PRESSURE INCREASED
     Route: 048

REACTIONS (3)
  - BRADYCARDIA [None]
  - DIZZINESS [None]
  - DRUG INTERACTION POTENTIATION [None]
